FAERS Safety Report 10164987 (Version 2)
Quarter: 2014Q2

REPORT INFORMATION
  Report Type: Spontaneous
  Country: US (occurrence: US)
  Receive Date: 20140510
  Receipt Date: 20140510
  Transmission Date: 20141212
  Serious: Yes (Hospitalization)
  Sender: FDA-Public Use
  Company Number: US-BRISTOL-MYERS SQUIBB COMPANY-19671924

PATIENT
  Age: 88 Year
  Sex: Female

DRUGS (9)
  1. BYDUREON [Suspect]
     Indication: GLYCOSYLATED HAEMOGLOBIN INCREASED
     Dosage: 31JUL13-31AUG13
     Dates: start: 20130731, end: 20131010
  2. BYDUREON [Suspect]
     Indication: DIABETES MELLITUS
     Dosage: 31JUL13-31AUG13
     Dates: start: 20130731, end: 20131010
  3. ZOFRAN [Concomitant]
     Dates: start: 20130828
  4. LEVBID [Concomitant]
     Dates: start: 20130930
  5. TRAZODONE HCL [Concomitant]
     Dosage: 50MG Q/NIGHTLY
     Dates: start: 20130917
  6. SENOKOT [Concomitant]
     Dates: start: 20130930
  7. CRESTOR [Concomitant]
     Dates: start: 20120511
  8. ASTELIN [Concomitant]
     Route: 045
     Dates: start: 20130824
  9. BETAPACE [Concomitant]
     Dates: start: 20130828

REACTIONS (7)
  - Abdominal pain [Unknown]
  - Nausea [Recovered/Resolved]
  - Sleep disorder [Unknown]
  - Pyrexia [Unknown]
  - Vomiting [Unknown]
  - Asthenia [Unknown]
  - Dizziness [Unknown]
